FAERS Safety Report 12339102 (Version 2)
Quarter: 2016Q2

REPORT INFORMATION
  Report Type: Spontaneous
  Country: US (occurrence: US)
  Receive Date: 20160505
  Receipt Date: 20160505
  Transmission Date: 20160815
  Serious: No
  Sender: FDA-Public Use
  Company Number: US-MAYNE PHARMA-2015MYN000129

PATIENT
  Sex: Female
  Weight: 70.3 kg

DRUGS (16)
  1. COENZYME Q10 [Concomitant]
     Active Substance: UBIDECARENONE
     Indication: SUPPLEMENTATION THERAPY
     Dosage: 100 MG, QD, SINCE 10 YEARS
  2. GARLIC                             /01570501/ [Concomitant]
     Active Substance: GARLIC
     Indication: BLOOD TRIGLYCERIDES INCREASED
     Dosage: 200 MG, BID
  3. MAGNESIUM [Concomitant]
     Active Substance: MAGNESIUM
     Indication: SLEEP DISORDER
  4. LIOTHYRONINE SODIUM. [Suspect]
     Active Substance: LIOTHYRONINE SODIUM
     Indication: THYROID DISORDER
     Dosage: UNK
     Route: 048
     Dates: start: 20150714, end: 20150819
  5. RITALIN [Concomitant]
     Active Substance: METHYLPHENIDATE HYDROCHLORIDE
     Indication: HYPOTENSION
     Dosage: 10 MG, BID
     Route: 048
     Dates: start: 2013
  6. MAGNESIUM [Concomitant]
     Active Substance: MAGNESIUM
     Indication: PROPHYLAXIS
     Dosage: 500 MG, ONCE AT BED TIME SINCE ONE YEAR
  7. SELENIUM [Concomitant]
     Active Substance: SELENIUM
     Indication: PROPHYLAXIS
     Dosage: 200 MCG, QD
  8. LIOTHYRONINE [Suspect]
     Active Substance: LIOTHYRONINE
     Indication: THYROID DISORDER
     Dosage: 5 MCG, BID
     Route: 048
     Dates: start: 20150819, end: 201510
  9. TESTOSTERONE. [Concomitant]
     Active Substance: TESTOSTERONE
     Indication: HORMONE LEVEL ABNORMAL
     Dosage: 5 G/ML, ONCE A DAY
     Route: 061
     Dates: start: 201507
  10. SALT [Concomitant]
     Active Substance: SODIUM CHLORIDE
     Indication: HEART RATE DECREASED
     Dosage: ONE TEASPOON DAILY IN GLASS OF WATER , SINCE 2 YEARS
  11. ESTROGEN [Concomitant]
     Active Substance: ESTRONE\SUS SCROFA OVARY
     Indication: HORMONE LEVEL ABNORMAL
     Dosage: 80/10/10.25 MG/ML COMPUNDING CREAM ONCE A DAY
     Route: 061
  12. VITAMIN D                          /00107901/ [Concomitant]
     Active Substance: ERGOCALCIFEROL
     Indication: VITAMIN D DEFICIENCY
     Dosage: 500 IU, BID, FOR YEARS
  13. BIOTIN [Concomitant]
     Active Substance: BIOTIN
     Indication: ALOPECIA
     Dosage: 1 TABLET A DAY
  14. RITALIN [Concomitant]
     Active Substance: METHYLPHENIDATE HYDROCHLORIDE
     Indication: HEART RATE DECREASED
  15. ZINC [Concomitant]
     Active Substance: ZINC\ZINC CHLORIDE
     Indication: ALOPECIA
     Dosage: 400 MG, QD, SINCE MENOPAUSE
  16. PROGESTERONE. [Concomitant]
     Active Substance: PROGESTERONE
     Indication: HORMONE LEVEL ABNORMAL
     Dosage: 25 MG, BID
     Route: 060

REACTIONS (3)
  - Feeling abnormal [Unknown]
  - Diarrhoea [Recovered/Resolved]
  - Therapeutic response unexpected [Unknown]
